FAERS Safety Report 6163914-0 (Version None)
Quarter: 2009Q2

REPORT INFORMATION
  Report Type: 
  Country: None (occurrence: None)
  Receive Date: 20090420
  Receipt Date: 20090409
  Transmission Date: 20091009
  Serious: Yes (Life-Threatening)
  Sender: FDA-Public Use
  Company Number: GXKR2009NL04521

PATIENT
  Age: 62 Year
  Sex: Female

DRUGS (2)
  1. FLECAINIDE (NGX) (FLECAINIDE) UNKNOWN [Suspect]
     Indication: ATRIAL FIBRILLATION
     Dosage: 150 MG IN 10 MIN; INTRAVENOUS
     Route: 042
  2. METOPROLOL TARTRATE [Concomitant]

REACTIONS (6)
  - ATRIAL FLUTTER [None]
  - BRUGADA SYNDROME [None]
  - NODAL RHYTHM [None]
  - SINUS ARREST [None]
  - SINUS BRADYCARDIA [None]
  - SINUS TACHYCARDIA [None]
